FAERS Safety Report 10350142 (Version 1)
Quarter: 2014Q3

REPORT INFORMATION
  Report Type: Report from Study
  Country: US (occurrence: US)
  Receive Date: 20140730
  Receipt Date: 20140730
  Transmission Date: 20150326
  Serious: No
  Sender: FDA-Public Use
  Company Number: US-ABBVIE-13P-163-1134542-00

PATIENT
  Sex: Male
  Weight: 90.8 kg

DRUGS (6)
  1. DIOVAN [Concomitant]
     Active Substance: VALSARTAN
     Indication: PRODUCT USED FOR UNKNOWN INDICATION
  2. OMEGA 3 [Concomitant]
     Active Substance: OMEGA-3 FATTY ACIDS
     Indication: PRODUCT USED FOR UNKNOWN INDICATION
  3. NIASPAN [Suspect]
     Active Substance: NIACIN
     Indication: HIGH DENSITY LIPOPROTEIN DECREASED
     Dosage: AT BEDTIME
  4. ASA [Concomitant]
     Active Substance: ASPIRIN
     Indication: PRODUCT USED FOR UNKNOWN INDICATION
  5. FOLIC ACID. [Concomitant]
     Active Substance: FOLIC ACID
     Indication: PRODUCT USED FOR UNKNOWN INDICATION
  6. VITAMIN B NOS [Concomitant]
     Active Substance: VITAMIN B
     Indication: PRODUCT USED FOR UNKNOWN INDICATION

REACTIONS (1)
  - Flushing [Recovered/Resolved]
